FAERS Safety Report 21944823 (Version 4)
Quarter: 2025Q2

REPORT INFORMATION
  Report Type: Spontaneous
  Country: US (occurrence: US)
  Receive Date: 20230202
  Receipt Date: 20250624
  Transmission Date: 20250717
  Serious: No
  Sender: PFIZER
  Company Number: US-PFIZER INC-PV202300020936

PATIENT
  Age: 58 Year
  Sex: Female

DRUGS (3)
  1. INLYTA [Suspect]
     Active Substance: AXITINIB
     Dates: end: 202301
  2. INLYTA [Suspect]
     Active Substance: AXITINIB
     Dates: start: 202301, end: 202301
  3. INLYTA [Suspect]
     Active Substance: AXITINIB
     Dates: end: 20250523

REACTIONS (6)
  - Liver function test increased [Recovering/Resolving]
  - Hypertension [Unknown]
  - Fatigue [Unknown]
  - Pain in extremity [Unknown]
  - Arthralgia [Unknown]
  - Off label use [Unknown]

NARRATIVE: CASE EVENT DATE: 20230101
